FAERS Safety Report 21438203 (Version 2)
Quarter: 2022Q4

REPORT INFORMATION
  Report Type: Spontaneous
  Country: IT (occurrence: None)
  Receive Date: 20221011
  Receipt Date: 20221228
  Transmission Date: 20230113
  Serious: Yes (Other)
  Sender: FDA-Public Use
  Company Number: 2022A336692

PATIENT
  Age: 67 Year
  Sex: Male

DRUGS (5)
  1. TICAGRELOR [Suspect]
     Active Substance: TICAGRELOR
     Indication: Antiplatelet therapy
     Dosage: 180.0MG UNKNOWN
     Route: 048
     Dates: start: 20220101, end: 20220227
  2. ASPIRIN [Suspect]
     Active Substance: ASPIRIN
     Indication: Antiplatelet therapy
     Route: 048
     Dates: start: 20220101, end: 20220227
  3. RAMIPRIL [Concomitant]
     Active Substance: RAMIPRIL
  4. EZETIMIBE\ROSUVASTATIN ZINC [Concomitant]
     Active Substance: EZETIMIBE\ROSUVASTATIN ZINC
  5. BISOPROLOL FUMARATE [Concomitant]
     Active Substance: BISOPROLOL FUMARATE

REACTIONS (1)
  - Anaemia [Recovering/Resolving]

NARRATIVE: CASE EVENT DATE: 20220227
